FAERS Safety Report 7810777-0 (Version None)
Quarter: 2011Q4

REPORT INFORMATION
  Report Type: 
  Country: None (occurrence: None)
  Receive Date: 20111006
  Receipt Date: 20110926
  Transmission Date: 20120403
  Serious: Yes (Disabling, Other)
  Sender: FDA-Public Use
  Company Number: 2011MA001948

PATIENT
  Sex: Male
  Weight: 55.3388 kg

DRUGS (30)
  1. PLAVIX [Concomitant]
  2. METOCLOPRAMIDE [Suspect]
     Indication: GASTROOESOPHAGEAL REFLUX DISEASE
     Dosage: 10 MG, QID, PO
     Route: 048
     Dates: start: 20051121, end: 20100201
  3. EFFEXOR [Concomitant]
  4. CLOPIDOGREL [Concomitant]
  5. BACITRACIN [Concomitant]
  6. DPT [Concomitant]
  7. PREDNISONE [Concomitant]
  8. SODIUM CHLORIDE [Concomitant]
  9. CALCIUM CARBONATE [Concomitant]
  10. AMOXICILLIN [Concomitant]
  11. FINASTERIDE [Concomitant]
  12. DIPHENHYDRAMINE HCL [Concomitant]
  13. DOXAZOSIN MESYLATE [Concomitant]
  14. PREVACID [Concomitant]
  15. CYANOCOBALAMIN [Concomitant]
  16. B-12 INJECTABLE [Concomitant]
  17. FLUTICASONE PROPIONATE [Concomitant]
  18. LOPERAMIDE HCL [Concomitant]
  19. PREDNISONE [Concomitant]
  20. ALBUTEROL [Concomitant]
  21. FUROSEMIDE [Concomitant]
  22. METHYLPREDNISOLONE [Concomitant]
  23. ESCITALOPRAM [Concomitant]
  24. ENTOCORT EC [Concomitant]
  25. MVI/MINERALS [Concomitant]
  26. OMEPRAZOLE [Concomitant]
  27. EPIPEN [Concomitant]
  28. ACETAMINOPHEN [Concomitant]
  29. VITAMIN D [Concomitant]
  30. COGENTIN [Concomitant]

REACTIONS (25)
  - CATARACT [None]
  - MENTAL STATUS CHANGES [None]
  - DYSPHAGIA [None]
  - EMOTIONAL DISTRESS [None]
  - ENCEPHALOMALACIA [None]
  - GAIT DISTURBANCE [None]
  - PROTRUSION TONGUE [None]
  - HEAD INJURY [None]
  - TONGUE DISORDER [None]
  - WEIGHT DECREASED [None]
  - CEREBELLAR ATROPHY [None]
  - HEMIPARESIS [None]
  - INCORRECT DRUG ADMINISTRATION DURATION [None]
  - CEREBELLAR INFARCTION [None]
  - DYSSTASIA [None]
  - AMNESIA [None]
  - FLAT AFFECT [None]
  - EATING DISORDER [None]
  - OESOPHAGEAL HYPOMOTILITY [None]
  - BALANCE DISORDER [None]
  - TARDIVE DYSKINESIA [None]
  - FAMILY STRESS [None]
  - SPEECH DISORDER [None]
  - FALL [None]
  - CHOKING [None]
